FAERS Safety Report 10686167 (Version 3)
Quarter: 2015Q3

REPORT INFORMATION
  Report Type: Report from Study
  Country: IL (occurrence: IL)
  Receive Date: 20141231
  Receipt Date: 20150923
  Transmission Date: 20151125
  Serious: Yes (Hospitalization)
  Sender: FDA-Public Use
  Company Number: IL-ABBVIE-14K-082-1327036-00

PATIENT
  Sex: Female

DRUGS (1)
  1. HUMIRA [Suspect]
     Active Substance: ADALIMUMAB
     Indication: CROHN^S DISEASE
     Route: 058
     Dates: start: 20130601

REACTIONS (11)
  - Abdominal pain [Unknown]
  - Gait disturbance [Unknown]
  - Drug ineffective [Unknown]
  - Ileal stenosis [Unknown]
  - Diarrhoea [Unknown]
  - Intestinal obstruction [Unknown]
  - Functional gastrointestinal disorder [Unknown]
  - Bedridden [Unknown]
  - Mobility decreased [Unknown]
  - Procedural pain [Unknown]
  - Crohn^s disease [Unknown]

NARRATIVE: CASE EVENT DATE: 2015
